FAERS Safety Report 8001976-6 (Version None)
Quarter: 2011Q4

REPORT INFORMATION
  Report Type: 
  Country: None (occurrence: None)
  Receive Date: 20111222
  Receipt Date: 20111215
  Transmission Date: 20120403
  Serious: Yes (Hospitalization, Other)
  Sender: FDA-Public Use
  Company Number: US-ROCHE-802461

PATIENT
  Sex: Female
  Weight: 95.34 kg

DRUGS (2)
  1. ACCUTANE [Suspect]
     Indication: ACNE
     Dosage: TAKEN IN 80S FOR 3 TO 4 MONTHS
     Route: 048
  2. ACCUTANE [Suspect]
     Dosage: TAKEN FOR 9 MONTHS

REACTIONS (4)
  - CROHN'S DISEASE [None]
  - ARTHRALGIA [None]
  - DEPRESSION [None]
  - RENAL FAILURE [None]
